FAERS Safety Report 16827270 (Version 1)
Quarter: 2019Q3

REPORT INFORMATION
  Report Type: Spontaneous
  Country: DE (occurrence: DE)
  Receive Date: 20190919
  Receipt Date: 20190919
  Transmission Date: 20191005
  Serious: Yes (Congenital Anomaly)
  Sender: FDA-Public Use
  Company Number: DE-ABBVIE-19K-062-2930003-00

PATIENT
  Age: 1 Day
  Sex: Male
  Weight: 3.52 kg

DRUGS (2)
  1. HUMIRA [Suspect]
     Active Substance: ADALIMUMAB
     Indication: MATERNAL EXPOSURE TIMING UNSPECIFIED
     Route: 064
     Dates: start: 20180402, end: 20181205
  2. INFLUENZA VACCINE [Concomitant]
     Active Substance: INFLUENZA VIRUS VACCINE
     Indication: IMMUNISATION
     Route: 064
     Dates: start: 20181113, end: 20181113

REACTIONS (4)
  - Foetal exposure during pregnancy [Unknown]
  - Ventricular septal defect [Recovering/Resolving]
  - Atrial septal defect [Not Recovered/Not Resolved]
  - Bladder hypertrophy [Not Recovered/Not Resolved]

NARRATIVE: CASE EVENT DATE: 20190115
